FAERS Safety Report 6156502-3 (Version None)
Quarter: 2009Q2

REPORT INFORMATION
  Report Type: 
  Country: None (occurrence: None)
  Receive Date: 20090413
  Receipt Date: 20080909
  Transmission Date: 20091009
  Serious: Yes (Other)
  Sender: FDA-Public Use
  Company Number: OPER20080183

PATIENT
  Sex: Female

DRUGS (1)
  1. OPANA ER [Suspect]
     Indication: PAIN

REACTIONS (3)
  - ACCIDENTAL OVERDOSE [None]
  - DRUG INTERACTION [None]
  - NONSPECIFIC REACTION [None]
